FAERS Safety Report 7590799-8 (Version None)
Quarter: 2011Q3

REPORT INFORMATION
  Report Type: 
  Country: None (occurrence: None)
  Receive Date: 20110705
  Receipt Date: 20110629
  Transmission Date: 20111222
  Serious: Yes (Other)
  Sender: FDA-Public Use
  Company Number: JP-PFIZER INC-2011115690

PATIENT
  Age: 56 Year
  Sex: Male
  Weight: 63 kg

DRUGS (4)
  1. ZYVOX [Suspect]
     Indication: GANGRENE
  2. ZYVOX [Suspect]
     Indication: STAPHYLOCOCCAL SEPSIS
     Dosage: 600 MG, 1X/DAY
     Route: 041
     Dates: start: 20110517, end: 20110517
  3. VANCOMYCIN HCL [Suspect]
     Indication: STAPHYLOCOCCAL SEPSIS
     Dosage: 1 G, 1X/DAY
     Route: 041
     Dates: start: 20110517, end: 20110517
  4. VANCOMYCIN HCL [Suspect]
     Indication: GANGRENE

REACTIONS (2)
  - DYSPNOEA [None]
  - CONJUNCTIVAL OEDEMA [None]
